FAERS Safety Report 14435317 (Version 1)
Quarter: 2018Q1

REPORT INFORMATION
  Report Type: Spontaneous
  Country: US (occurrence: US)
  Receive Date: 20180125
  Receipt Date: 20180125
  Transmission Date: 20180509
  Serious: Yes (Other)
  Sender: FDA-Public Use
  Company Number: US-WEST-WARD PHARMACEUTICALS CORP.-US-H14001-18-00435

PATIENT
  Age: 27 Year
  Sex: Female

DRUGS (2)
  1. SUFENTANIL [Suspect]
     Active Substance: SUFENTANIL
     Indication: EPIDURAL ANALGESIA
     Dosage: PIEB OF 9 ML OF 0.0625% BUPIVACAINE WITH SUFENTANIL 0.4 ?G/ML SOLUTION EVERY 45 MINUTES (FIFTH PI...
     Route: 008
  2. BUPIVACAINE 0.0625 % [Suspect]
     Active Substance: BUPIVACAINE
     Indication: EPIDURAL ANALGESIA
     Dosage: PIEB OF 9 ML OF 0.0625% BUPIVACAINE WITH SUFENTANIL 0.4 ?G/ML SOLUTION EVERY 45 MINUTES (FIFTH PI...
     Route: 008

REACTIONS (9)
  - Motor dysfunction [Recovered/Resolved]
  - Hypotension [Recovered/Resolved]
  - Nausea [Recovered/Resolved]
  - Device dislocation [None]
  - Maternal exposure during delivery [None]
  - Maternal exposure during pregnancy [Recovered/Resolved]
  - Sensory level abnormal [Recovered/Resolved]
  - Dyspnoea [Recovered/Resolved]
  - Product administered at inappropriate site [Unknown]
